FAERS Safety Report 7315119-5 (Version None)
Quarter: 2011Q1

REPORT INFORMATION
  Report Type: 
  Country: None (occurrence: None)
  Receive Date: 20110225
  Receipt Date: 20100409
  Transmission Date: 20110831
  Serious: No
  Sender: FDA-Public Use
  Company Number: US-MYLANLABS-2010S1004887

PATIENT
  Age: 22 Year
  Sex: Male
  Weight: 74.84 kg

DRUGS (3)
  1. AMNESTEEM [Suspect]
     Indication: ACNE
  2. AMNESTEEM [Suspect]
  3. SOTRET [Suspect]
     Indication: ACNE

REACTIONS (4)
  - MALAISE [None]
  - MOOD ALTERED [None]
  - ABDOMINAL DISCOMFORT [None]
  - BACK PAIN [None]
